FAERS Safety Report 7424722-3 (Version None)
Quarter: 2011Q2

REPORT INFORMATION
  Report Type: 
  Country: None (occurrence: None)
  Receive Date: 20110419
  Receipt Date: 20110413
  Transmission Date: 20111010
  Serious: Yes (Death)
  Sender: FDA-Public Use
  Company Number: US-GILEAD-2011-0038279

PATIENT
  Sex: Female
  Weight: 64.014 kg

DRUGS (26)
  1. TYVASO [Concomitant]
     Indication: PULMONARY ARTERIAL HYPERTENSION
  2. ZAROLXYN [Concomitant]
  3. MUCINEX [Concomitant]
  4. ALPRAZOLAM [Concomitant]
  5. FLONASE [Concomitant]
  6. LETAIRIS [Suspect]
     Indication: PULMONARY ARTERIAL HYPERTENSION
     Route: 048
     Dates: start: 20101118
  7. ISOSORBIDE DINITRATE [Concomitant]
  8. PROVENTIL-HFA [Concomitant]
  9. POTASSIUM CHLORIDE CR [Concomitant]
  10. ADCIRCA [Concomitant]
     Indication: PULMONARY ARTERIAL HYPERTENSION
  11. BUMEX [Concomitant]
  12. NEXIUM [Concomitant]
  13. COLACE [Concomitant]
  14. OMEPRAZOLE [Concomitant]
  15. DURAGESIC [Concomitant]
  16. VENTAVIS [Concomitant]
  17. COUMADIN [Concomitant]
  18. DIGOXIN [Concomitant]
  19. VERAPAMIL [Concomitant]
  20. SPIRONOLACTONE [Concomitant]
  21. ALBUTEROL SULFATE [Concomitant]
  22. CREON [Concomitant]
  23. LYRICA [Concomitant]
  24. LORATADINE [Concomitant]
  25. ASPIRIN [Concomitant]
  26. LASIX [Concomitant]

REACTIONS (1)
  - MYOCARDIAL INFARCTION [None]
